FAERS Safety Report 5201737-7 (Version None)
Quarter: 2007Q1

REPORT INFORMATION
  Report Type: 
  Country: None (occurrence: None)
  Receive Date: 20070104
  Receipt Date: 20061229
  Transmission Date: 20070707
  Serious: Yes (Other)
  Sender: FDA-Public Use
  Company Number: 234426

PATIENT
  Age: 22 Year
  Sex: Female

DRUGS (1)
  1. XOLAIR(OLAMIZUMAB) PWDR + SOLVENT,INJECTION SOLN, 150 MG [Suspect]
     Indication: DRUG USE FOR UNKNOWN INDICATION

REACTIONS (5)
  - ANAPHYLACTIC REACTION [None]
  - ASTHMA [None]
  - DYSPNOEA [None]
  - FORCED EXPIRATORY VOLUME DECREASED [None]
  - VITAL CAPACITY DECREASED [None]
